FAERS Safety Report 13825483 (Version 1)
Quarter: 2017Q3

REPORT INFORMATION
  Report Type: Spontaneous
  Country: US (occurrence: US)
  Receive Date: 20170802
  Receipt Date: 20170802
  Transmission Date: 20171127
  Serious: No
  Sender: FDA-Public Use
  Company Number: US-009507513-1707USA010433

PATIENT
  Sex: Female
  Weight: 52.61 kg

DRUGS (2)
  1. NUVARING [Suspect]
     Active Substance: ETHINYL ESTRADIOL\ETONOGESTREL
     Indication: HORMONE THERAPY
  2. NUVARING [Suspect]
     Active Substance: ETHINYL ESTRADIOL\ETONOGESTREL
     Indication: CONTRACEPTION
     Dosage: DOSE/FREQUENCY: 3 WEEKS IN, 1 WEEK OUT
     Route: 067

REACTIONS (10)
  - Weight decreased [Unknown]
  - Intentional medical device removal by patient [Unknown]
  - Alopecia [Unknown]
  - Product use in unapproved indication [Unknown]
  - Malaise [Unknown]
  - Muscle spasms [Unknown]
  - Menstruation irregular [Unknown]
  - Poor quality drug administered [Unknown]
  - Nausea [Unknown]
  - Incorrect drug administration duration [Unknown]

NARRATIVE: CASE EVENT DATE: 2017
